FAERS Safety Report 7654232-X (Version None)
Quarter: 2011Q3

REPORT INFORMATION
  Report Type: 
  Country: None (occurrence: None)
  Receive Date: 20110803
  Receipt Date: 20110727
  Transmission Date: 20111222
  Serious: Yes (Death, Other)
  Sender: FDA-Public Use
  Company Number: CA-PURDUE-CAN-2011-0002133

PATIENT
  Sex: Female

DRUGS (2)
  1. BUPRENORPHINE [Suspect]
     Indication: BACK PAIN
     Dosage: UNK
     Route: 062
  2. ASTHMA PUFFER [Suspect]
     Indication: ASTHMA
     Dosage: UNK
     Route: 065

REACTIONS (3)
  - SUDDEN DEATH [None]
  - ANAPHYLACTIC REACTION [None]
  - ASTHMA [None]
